FAERS Safety Report 8130069-2 (Version None)
Quarter: 2012Q1

REPORT INFORMATION
  Report Type: 
  Country: None (occurrence: None)
  Receive Date: 20120210
  Receipt Date: 20120131
  Transmission Date: 20120608
  Serious: Yes (Other)
  Sender: FDA-Public Use
  Company Number: CHPA2012US002468

PATIENT
  Sex: Female

DRUGS (6)
  1. AMITRIPTYLINE HCL [Concomitant]
     Indication: FIBROMYALGIA
     Dosage: 25 MG, UNK
  2. VITAMINS NOS [Concomitant]
  3. EXCEDRIN EXTRA STRENGTH TABLETS [Suspect]
     Indication: FIBROMYALGIA
     Dosage: 1 DF, 2-3 TIMES A DAY
     Route: 048
     Dates: start: 19940101
  4. XANAX [Concomitant]
     Indication: FIBROMYALGIA
     Dosage: 1/4-1/2 PILL AS NEEDED
  5. FISH OIL [Concomitant]
     Indication: BLOOD CHOLESTEROL
  6. NAPROXEN [Concomitant]
     Indication: FIBROMYALGIA
     Dosage: 0.5 DF, UNK

REACTIONS (5)
  - THERAPEUTIC RESPONSE UNEXPECTED [None]
  - UNDERDOSE [None]
  - KNEE DEFORMITY [None]
  - SYNOVIAL RUPTURE [None]
  - JOINT CREPITATION [None]
